FAERS Safety Report 25287187 (Version 1)
Quarter: 2025Q2

REPORT INFORMATION
  Report Type: Spontaneous
  Country: GB (occurrence: GB)
  Receive Date: 20250509
  Receipt Date: 20250509
  Transmission Date: 20250717
  Serious: Yes (Disabling, Other)
  Sender: HIKMA
  Company Number: None

PATIENT
  Age: 30 Year
  Sex: Male
  Weight: 75 kg

DRUGS (2)
  1. CIPROFLOXACIN [Suspect]
     Active Substance: CIPROFLOXACIN
     Indication: Pouchitis
     Dosage: 250 MILLIGRAM, BID, INITIAL 4 WEEK COURSE
     Route: 065
  2. CIPROFLOXACIN [Suspect]
     Active Substance: CIPROFLOXACIN
     Dosage: 500 MILLIGRAM, BID
     Route: 065

REACTIONS (10)
  - Paraesthesia [Recovered/Resolved with Sequelae]
  - Palpitations [Recovered/Resolved]
  - Pain [Unknown]
  - Hyperaesthesia [Unknown]
  - Allodynia [Unknown]
  - Sensitive skin [Unknown]
  - Dizziness postural [Unknown]
  - Disturbance in attention [Unknown]
  - Small fibre neuropathy [Unknown]
  - Autonomic neuropathy [Unknown]

NARRATIVE: CASE EVENT DATE: 20200701
